FAERS Safety Report 19968144 (Version 3)
Quarter: 2022Q1

REPORT INFORMATION
  Report Type: Report from Study
  Country: US (occurrence: US)
  Receive Date: 20211019
  Receipt Date: 20220217
  Transmission Date: 20220424
  Serious: Yes (Other)
  Sender: FDA-Public Use
  Company Number: US-CLINIGEN GROUP PLC/ CLINIGEN HEALTHCARE LTD-US-CLGN-21-00552

PATIENT
  Age: 68 Year
  Sex: Female
  Weight: 53.9 kg

DRUGS (16)
  1. PROLEUKIN [Suspect]
     Active Substance: ALDESLEUKIN
     Indication: Lung adenocarcinoma
     Route: 042
     Dates: start: 20211007, end: 20211009
  2. LIFILEUCEL [Suspect]
     Active Substance: LIFILEUCEL
     Indication: Lung adenocarcinoma
     Dosage: 450(X10)*9
     Route: 042
     Dates: start: 20211006, end: 20211006
  3. CYCLOPHOSPHAMIDE [Suspect]
     Active Substance: CYCLOPHOSPHAMIDE
     Indication: Lung adenocarcinoma
     Route: 042
     Dates: start: 20210929, end: 20210930
  4. FLUDARABINE [Suspect]
     Active Substance: FLUDARABINE PHOSPHATE
     Indication: Lung adenocarcinoma
     Route: 042
     Dates: start: 20211001, end: 20211005
  5. PIPERACILLIN SODIUM\TAZOBACTAM SODIUM [Concomitant]
     Active Substance: PIPERACILLIN SODIUM\TAZOBACTAM SODIUM
     Indication: Product used for unknown indication
     Route: 042
     Dates: start: 20211010
  6. HYDRALAZINE [Concomitant]
     Active Substance: HYDRALAZINE HYDROCHLORIDE
     Indication: Product used for unknown indication
     Route: 042
     Dates: start: 20211011
  7. GUAIFENESIN/CODEIN [Concomitant]
     Indication: Product used for unknown indication
     Route: 048
     Dates: start: 20211011
  8. CEFTRIAXONE [Concomitant]
     Active Substance: CEFTRIAXONE
     Indication: Product used for unknown indication
     Route: 042
     Dates: start: 20211011
  9. CARBOXYMETHYLCELLULOSE SODIUM\DEVICE\SORBINICATE [Concomitant]
     Active Substance: CARBOXYMETHYLCELLULOSE SODIUM\DEVICE\SORBINICATE
     Indication: Product used for unknown indication
     Route: 048
     Dates: start: 20211010
  10. SODIUM CHLORIDE [Concomitant]
     Active Substance: SODIUM CHLORIDE
     Indication: Product used for unknown indication
     Route: 042
     Dates: start: 20211010
  11. SODIUM CHLORIDE [Concomitant]
     Active Substance: SODIUM CHLORIDE
     Route: 040
     Dates: start: 20211010
  12. BENZOCAINE/MENTHOL [Concomitant]
     Indication: Product used for unknown indication
     Dosage: 1 LOZENGE
     Route: 048
     Dates: start: 20211010
  13. CALCIUM GLUCONATE [Concomitant]
     Active Substance: CALCIUM GLUCONATE
     Indication: Product used for unknown indication
     Dates: start: 20211010
  14. MAGNESIUM SULFATE [Concomitant]
     Active Substance: MAGNESIUM SULFATE
     Indication: Product used for unknown indication
     Route: 042
     Dates: start: 20211010
  15. POTASSIUM CHLORIDE [Concomitant]
     Active Substance: POTASSIUM CHLORIDE
     Indication: Product used for unknown indication
     Dates: start: 20211010
  16. INVESTIGATIONAL PRODUCT [Suspect]
     Active Substance: INVESTIGATIONAL PRODUCT

REACTIONS (1)
  - Abdominal infection [Recovered/Resolved]

NARRATIVE: CASE EVENT DATE: 20211009
